FAERS Safety Report 4802229-7 (Version None)
Quarter: 2005Q4

REPORT INFORMATION
  Report Type: 
  Country: None (occurrence: None)
  Receive Date: 20051011
  Receipt Date: 20051003
  Transmission Date: 20060501
  Serious: Yes (Death)
  Sender: FDA-Public Use
  Company Number: 2005S1009713

PATIENT
  Age: 76 Year
  Sex: Female
  Weight: 39.0093 kg

DRUGS (6)
  1. FENTANYL [Suspect]
     Indication: HERPES ZOSTER
     Dosage: 50 MCG/HR;TDER
     Route: 062
     Dates: start: 20050917, end: 20050918
  2. DEMEROL [Suspect]
     Indication: HERPES ZOSTER
     Dosage: 75 MG; IM
     Route: 030
     Dates: start: 20050917, end: 20050917
  3. PREDNISONE [Concomitant]
  4. GABAPENTIN [Concomitant]
  5. PARACETAMOL/HYDROCODONE BITARTRATE [Concomitant]
  6. .. [Concomitant]

REACTIONS (9)
  - ABASIA [None]
  - CONFUSIONAL STATE [None]
  - DIZZINESS [None]
  - HEART RATE INCREASED [None]
  - HYPOTENSION [None]
  - NAUSEA [None]
  - RESPIRATORY ARREST [None]
  - RESPIRATORY DISTRESS [None]
  - URINE OUTPUT DECREASED [None]
